FAERS Safety Report 8454772-X (Version None)
Quarter: 2012Q2

REPORT INFORMATION
  Report Type: 
  Country: None (occurrence: None)
  Receive Date: 20120621
  Receipt Date: 20120612
  Transmission Date: 20120825
  Serious: Yes (Hospitalization, Other)
  Sender: FDA-Public Use
  Company Number: NL-JNJFOC-20120312240

PATIENT
  Age: 45 Year
  Sex: Female

DRUGS (2)
  1. CONTRACEPTION [Concomitant]
     Indication: CONTRACEPTION
     Route: 065
  2. REMICADE [Suspect]
     Indication: CROHN'S DISEASE
     Route: 042

REACTIONS (2)
  - CEREBROVASCULAR ACCIDENT [None]
  - DEMENTIA [None]
